FAERS Safety Report 18839997 (Version 4)
Quarter: 2021Q1

REPORT INFORMATION
  Report Type: Report from Study
  Country: TR (occurrence: TR)
  Receive Date: 20210203
  Receipt Date: 20210212
  Transmission Date: 20210419
  Serious: Yes (Death, Hospitalization)
  Sender: FDA-Public Use
  Company Number: TR-ROCHE-2743482

PATIENT
  Age: 42 Year
  Sex: Female
  Weight: 78 kg

DRUGS (17)
  1. METHYLPREDNISOLONE. [Suspect]
     Active Substance: METHYLPREDNISOLONE
     Route: 042
     Dates: start: 20171229, end: 20180102
  2. METHYLPREDNISOLONE. [Suspect]
     Active Substance: METHYLPREDNISOLONE
     Route: 042
     Dates: start: 20180109, end: 20180130
  3. SULIDIN PLUS [Concomitant]
     Indication: ARTHRALGIA
     Route: 061
     Dates: start: 20201102
  4. DRAMAMINE [Concomitant]
     Active Substance: DIMENHYDRINATE
     Dosage: NEXT DOSE OF 50 MG ON: 05/JAN/2018, 07/JUN/2018, 29/NOV/2018, 24/MAY/2019, 12/NOV/2019, 01/JUN/2020,
     Route: 048
     Dates: start: 20171222, end: 20171222
  5. OCRELIZUMAB. [Suspect]
     Active Substance: OCRELIZUMAB
     Indication: RELAPSING-REMITTING MULTIPLE SCLEROSIS
     Dosage: DATE OF MOST RECENT DOSE OF OCRELIZUMAB PRIOR TO EVENT ONSET: 17/NOV/2020 (DOSE: 600 MG)
     Route: 042
     Dates: start: 20171222
  6. METHYLPREDNISOLONE. [Suspect]
     Active Substance: METHYLPREDNISOLONE
     Indication: RELAPSING-REMITTING MULTIPLE SCLEROSIS
     Dosage: DOSE OF LAST METHYLPREDNISOLONE ADMINISTERED PRIOR TO EVENT ONSET: 100 MG ONCE BEFORE INFUSION
     Route: 042
     Dates: start: 20171222, end: 20171222
  7. NOVORAPID [Concomitant]
     Active Substance: INSULIN ASPART
     Dosage: DOSE: 3 ML; CM3
     Route: 058
     Dates: end: 20201102
  8. LANTUS [Concomitant]
     Active Substance: INSULIN GLARGINE
     Dosage: 3 ML; CM3
     Route: 058
     Dates: end: 20201102
  9. LANTUS [Concomitant]
     Active Substance: INSULIN GLARGINE
     Route: 058
     Dates: start: 20201103
  10. METHYLPREDNISOLONE. [Suspect]
     Active Substance: METHYLPREDNISOLONE
     Dosage: NEXT DOSE OF 100 MG ON: 29/NOV/2018, 24/MAY/2019, 12/NOV/2019, 01/JUN/2020, 17/NOV/2020
     Route: 042
     Dates: start: 20180607, end: 20201117
  11. NOVORAPID [Concomitant]
     Active Substance: INSULIN ASPART
     Route: 058
     Dates: start: 20201103, end: 20201226
  12. NOVORAPID [Concomitant]
     Active Substance: INSULIN ASPART
     Route: 058
     Dates: start: 20201227
  13. AVIL [Concomitant]
     Active Substance: PHENIRAMINE
     Dosage: NEXT DOSE OF 45.5 MG ON: 05/JAN/2018, 07/JUN/2018, 29/NOV/2018, 24/MAY/2019, 12/NOV/2019
     Route: 042
     Dates: start: 20180607
  14. AVIL [Concomitant]
     Active Substance: PHENIRAMINE
     Dosage: NEXT DOSE OF 100 MG ON: 05/JAN/2018
     Route: 042
     Dates: start: 20171222
  15. METHYLPREDNISOLONE. [Suspect]
     Active Substance: METHYLPREDNISOLONE
     Route: 042
     Dates: start: 20180105, end: 20180105
  16. PANALGINE [Concomitant]
     Indication: TOOTHACHE
     Route: 048
     Dates: start: 20201105, end: 20201203
  17. PAROL [Concomitant]
     Active Substance: ACETAMINOPHEN
     Dosage: NEXT DOSE OF 500 MG ON: 05/JAN/2018, 07/JUN/2018, 29/NOV/2018, 24/MAY/2019, 12/NOV/2019, 01/JUN/2020
     Route: 048
     Dates: start: 20171222, end: 20171222

REACTIONS (1)
  - COVID-19 pneumonia [Fatal]

NARRATIVE: CASE EVENT DATE: 20201212
